FAERS Safety Report 9412099 (Version 1)
Quarter: 2013Q3

REPORT INFORMATION
  Report Type: Spontaneous
  Country: US (occurrence: None)
  Receive Date: 20130719
  Receipt Date: 20130719
  Transmission Date: 20140515
  Serious: No
  Sender: FDA-Public Use
  Company Number: None

PATIENT
  Age: 69 Year
  Sex: Female

DRUGS (4)
  1. XOLAIR [Suspect]
  2. MULTIVITAMIN [Concomitant]
  3. VITAMIN D [Concomitant]
  4. VITAMIN E [Concomitant]

REACTIONS (2)
  - Nasal congestion [None]
  - Nasal congestion [None]
